FAERS Safety Report 21552496 (Version 1)
Quarter: 2022Q4

REPORT INFORMATION
  Report Type: Spontaneous
  Country: GB (occurrence: GB)
  Receive Date: 20221104
  Receipt Date: 20221104
  Transmission Date: 20230113
  Serious: Yes (Other)
  Sender: FDA-Public Use
  Company Number: GB-CELLTRION INC.-2022GB018280

PATIENT

DRUGS (2)
  1. INFLIXIMAB [Suspect]
     Active Substance: INFLIXIMAB
     Dosage: 10 MG/KG, WEEKLY
  2. MESALAMINE [Suspect]
     Active Substance: MESALAMINE
     Dosage: 4.8 G

REACTIONS (6)
  - Haematochezia [Unknown]
  - Drug ineffective [Unknown]
  - Diarrhoea [Unknown]
  - Anal incontinence [Unknown]
  - Abdominal pain [Unknown]
  - Weight decreased [Unknown]
